FAERS Safety Report 5590093-0 (Version None)
Quarter: 2008Q1

REPORT INFORMATION
  Report Type: 
  Country: None (occurrence: None)
  Receive Date: 20080114
  Receipt Date: 20080108
  Transmission Date: 20080703
  Serious: Yes (Life-Threatening, Hospitalization)
  Sender: FDA-Public Use
  Company Number: US-SANOFI-SYNTHELABO-D01200702454

PATIENT
  Sex: Female
  Weight: 81.8 kg

DRUGS (10)
  1. ASCORBIC ACID [Concomitant]
     Indication: MEDICAL DIET
     Dosage: 500 MG
     Route: 065
     Dates: start: 19990101
  2. GINKGO BILOBA [Concomitant]
     Indication: MEDICAL DIET
     Dosage: 60 MG
     Route: 065
     Dates: start: 20010101
  3. PAXIL [Concomitant]
     Indication: ANXIETY
     Dosage: 20 MG
     Route: 065
     Dates: start: 19930101
  4. OMEGA III [Concomitant]
     Indication: MEDICAL DIET
     Dosage: 180 MG
     Route: 065
     Dates: start: 20050901
  5. CITRACAL + D [Concomitant]
     Indication: MEDICAL DIET
     Dosage: 1 OTHER
     Route: 065
  6. ADVICOR [Concomitant]
     Indication: BLOOD CHOLESTEROL INCREASED
     Dosage: 500 MG
     Route: 065
     Dates: start: 20050701
  7. PYCNOGENOL [Concomitant]
     Dosage: 50 MG
     Route: 065
     Dates: start: 20050901
  8. CALCIUM [Concomitant]
     Indication: MEDICAL DIET
     Dosage: 200 MG
     Route: 065
     Dates: start: 19990101
  9. CLOPIDOGREL [Suspect]
     Dosage: 75 MG
     Route: 048
     Dates: start: 20070111, end: 20070404
  10. SL650472 [Suspect]
     Indication: PERIPHERAL ARTERIAL OCCLUSIVE DISEASE
     Dosage: 20 MG
     Route: 048
     Dates: start: 20070125, end: 20070404

REACTIONS (1)
  - PULMONARY EMBOLISM [None]
